FAERS Safety Report 23993440 (Version 3)
Quarter: 2024Q3

REPORT INFORMATION
  Report Type: Spontaneous
  Country: NL (occurrence: NL)
  Receive Date: 20240620
  Receipt Date: 20240807
  Transmission Date: 20241017
  Serious: Yes (Other)
  Sender: MIRUM PHARMACEUTICALS
  Company Number: NL-MIRUM PHARMACEUTICALS, INC.-NL-MIR-24-00361

PATIENT

DRUGS (1)
  1. LIVMARLI [Suspect]
     Active Substance: MARALIXIBAT CHLORIDE
     Indication: Alagille syndrome
     Dosage: UNK
     Route: 065

REACTIONS (4)
  - Failure to thrive [Unknown]
  - Transplant evaluation [Unknown]
  - Pruritus [Unknown]
  - Drug ineffective [Unknown]

NARRATIVE: CASE EVENT DATE: 20231201
